FAERS Safety Report 8996962 (Version 2)
Quarter: 2013Q1

REPORT INFORMATION
  Report Type: Spontaneous
  Country: US (occurrence: None)
  Receive Date: 20121221
  Receipt Date: 20130125
  Transmission Date: 20140127
  Serious: Yes (Other)
  Sender: FDA-Public Use
  Company Number: AUR-APL-2012-05417

PATIENT
  Sex: Male

DRUGS (1)
  1. SERTRALINE [Suspect]
     Indication: PRODUCT USED FOR UNKNOWN INDICATION

REACTIONS (7)
  - Product quality issue [None]
  - Obsessive thoughts [None]
  - Depressed mood [None]
  - Social avoidant behaviour [None]
  - Decreased appetite [None]
  - Fear [None]
  - Condition aggravated [None]
